FAERS Safety Report 4652375-6 (Version None)
Quarter: 2005Q2

REPORT INFORMATION
  Report Type: 
  Country: None (occurrence: None)
  Receive Date: 20050502
  Receipt Date: 20050502
  Transmission Date: 20051028
  Serious: Yes (Hospitalization, Other)
  Sender: FDA-Public Use
  Company Number: None

PATIENT
  Age: 24 Year
  Sex: Female
  Weight: 49.8957 kg

DRUGS (1)
  1. DEPO-PROVERA [Suspect]

REACTIONS (7)
  - DEPRESSION [None]
  - EMOTIONAL DISORDER [None]
  - FATIGUE [None]
  - LOSS OF EMPLOYMENT [None]
  - NEOPLASM MALIGNANT [None]
  - RELATIONSHIP BREAKDOWN [None]
  - SUICIDAL IDEATION [None]
